FAERS Safety Report 9747496 (Version 1)
Quarter: 2013Q4

REPORT INFORMATION
  Report Type: Spontaneous
  Country: DE (occurrence: DE)
  Receive Date: 20131212
  Receipt Date: 20131212
  Transmission Date: 20140711
  Serious: Yes (Hospitalization)
  Sender: FDA-Public Use
  Company Number: DE-SUN PHARMACEUTICAL INDUSTRIES LTD-2013SUN05139

PATIENT
  Age: 47 Year
  Sex: Female

DRUGS (1)
  1. BACLOFEN [Suspect]
     Indication: SPASTIC PARAPLEGIA
     Dosage: 60 MG, SINGLE
     Route: 037

REACTIONS (9)
  - Respiratory arrest [Recovered/Resolved]
  - Delirium [Recovering/Resolving]
  - Autonomic nervous system imbalance [Recovered/Resolved]
  - Accidental overdose [Recovered/Resolved]
  - Loss of consciousness [Recovered/Resolved]
  - Convulsion [Recovered/Resolved]
  - Dizziness [Recovered/Resolved]
  - Confusional state [Recovering/Resolving]
  - Hallucination [Recovering/Resolving]
